FAERS Safety Report 22839695 (Version 9)
Quarter: 2024Q3

REPORT INFORMATION
  Report Type: Report from Study
  Country: US (occurrence: US)
  Receive Date: 20230818
  Receipt Date: 20240925
  Transmission Date: 20241016
  Serious: Yes (Hospitalization, Other)
  Sender: TAKEDA
  Company Number: US-TAKEDA-2023TUS043325

PATIENT
  Sex: Male

DRUGS (2)
  1. MARIBAVIR [Suspect]
     Active Substance: MARIBAVIR
     Indication: Cytomegalovirus infection
     Dosage: 400 MILLIGRAM, BID
     Route: 048
     Dates: start: 20230512, end: 20231108
  2. MARIBAVIR [Suspect]
     Active Substance: MARIBAVIR
     Dosage: 400 MILLIGRAM, BID
     Route: 048
     Dates: start: 20240124

REACTIONS (18)
  - Pleural effusion [Unknown]
  - Peripheral swelling [Unknown]
  - Loss of consciousness [Unknown]
  - Renal function test abnormal [Unknown]
  - Arthritis [Unknown]
  - Insomnia [Unknown]
  - Alopecia [Unknown]
  - Pruritus [Unknown]
  - Feeling hot [Unknown]
  - Dizziness [Unknown]
  - Joint swelling [Unknown]
  - Dyspnoea [Unknown]
  - Limb discomfort [Unknown]
  - Hunger [Unknown]
  - Photopsia [Unknown]
  - Pain [Unknown]
  - Fatigue [Unknown]
  - Dysgeusia [Unknown]
